FAERS Safety Report 18992481 (Version 2)
Quarter: 2021Q1

REPORT INFORMATION
  Report Type: Spontaneous
  Country: DE (occurrence: DE)
  Receive Date: 20210310
  Receipt Date: 20210317
  Transmission Date: 20210420
  Serious: Yes (Hospitalization, Other)
  Sender: FDA-Public Use
  Company Number: DE-FRESENIUS KABI-FK202102190

PATIENT
  Age: 64 Year
  Sex: Female
  Weight: 105 kg

DRUGS (1)
  1. OXALIPLATIN 5MG/ML CONCENTRATE FOR SOLUTION FOR INFUSION [Suspect]
     Active Substance: OXALIPLATIN
     Indication: NEOPLASM MALIGNANT
     Dosage: MONOTHERAPY, 221 MG
     Route: 042
     Dates: start: 20210201, end: 20210303

REACTIONS (8)
  - Anaphylactic reaction [Unknown]
  - Dyspnoea [Not Recovered/Not Resolved]
  - Paralysis [Not Recovered/Not Resolved]
  - Therapy change [Unknown]
  - Cyanosis [Not Recovered/Not Resolved]
  - Stridor [Not Recovered/Not Resolved]
  - Oxygen saturation decreased [Not Recovered/Not Resolved]
  - Dysphagia [Not Recovered/Not Resolved]

NARRATIVE: CASE EVENT DATE: 20210304
